FAERS Safety Report 4578427-7 (Version None)
Quarter: 2005Q1

REPORT INFORMATION
  Report Type: 
  Country: None (occurrence: None)
  Receive Date: 20050209
  Receipt Date: 20050127
  Transmission Date: 20050727
  Serious: Yes (Hospitalization, Other)
  Sender: FDA-Public Use
  Company Number: 2005006228

PATIENT
  Age: 75 Year
  Sex: Female
  Weight: 46.2669 kg

DRUGS (4)
  1. CELEBREX [Suspect]
     Indication: JOINT INJURY
     Dosage: ( 5 MG, 1 IN 1 D), ORAL
     Route: 048
  2. WARFARIN SODIUM [Suspect]
     Indication: CORONARY ARTERY DISEASE
     Dosage: 5 NG ( 5 MG, 1 IN 1 D), ORAL
     Route: 048
  3. TIRASENUD E (TIRASENUDE) [Concomitant]
  4. POTASSIUM CHLORIDE [Concomitant]

REACTIONS (10)
  - APHASIA [None]
  - BLOOD DISORDER [None]
  - CEREBRAL DISORDER [None]
  - CEREBRAL HAEMORRHAGE [None]
  - COMA [None]
  - CONFUSIONAL STATE [None]
  - HYPOAESTHESIA [None]
  - JOINT INJURY [None]
  - MEMORY IMPAIRMENT [None]
  - PROTHROMBIN TIME PROLONGED [None]
